FAERS Safety Report 17583656 (Version 1)
Quarter: 2020Q1

REPORT INFORMATION
  Report Type: Spontaneous
  Country: DE (occurrence: DE)
  Receive Date: 20200326
  Receipt Date: 20200326
  Transmission Date: 20200409
  Serious: Yes (Other)
  Sender: FDA-Public Use
  Company Number: DE-TEVA-2020-DE-1209013

PATIENT
  Age: 70 Year
  Sex: Male

DRUGS (17)
  1. PREDNISOLONE. [Suspect]
     Active Substance: PREDNISOLONE
     Indication: DIFFUSE LARGE B-CELL LYMPHOMA
     Dosage: CLASSICAL R-CHOP REGIMEN WAS ADMINISTERED IN 75 % DOSE REDUCTION DUE TO COMORBIDITIES. R-CHOP REG...
     Route: 065
  2. CISPLATIN. [Suspect]
     Active Substance: CISPLATIN
     Indication: DIFFUSE LARGE B-CELL LYMPHOMA
     Dosage: AS A PART OF R-DHAP REGIMEN.
     Route: 065
  3. OXALIPLATIN. [Suspect]
     Active Substance: OXALIPLATIN
     Indication: DIFFUSE LARGE B-CELL LYMPHOMA
     Dosage: AS A PART OF R-GEM/OX REGIMEN.
     Route: 065
  4. CYTARABINE. [Suspect]
     Active Substance: CYTARABINE
     Dosage: 200 MG/M2 DAILY; AS A PART OF DEXA-BEAM REGIMEN; OVER 4 DAYS.
     Route: 065
  5. VINCRISTINE [Suspect]
     Active Substance: VINCRISTINE
     Indication: DIFFUSE LARGE B-CELL LYMPHOMA
     Dosage: CLASSICAL R-CHOP REGIMEN WAS ADMINISTERED IN 75 % DOSE REDUCTION DUE TO COMORBIDITIES. R-CHOP REG...
     Route: 065
  6. DEXAMETHASONE. [Suspect]
     Active Substance: DEXAMETHASONE
     Indication: DIFFUSE LARGE B-CELL LYMPHOMA
     Dosage: AS A PART OF R-DHAP REGIMEN.
     Route: 065
  7. GEMCITABINE. [Suspect]
     Active Substance: GEMCITABINE
     Indication: DIFFUSE LARGE B-CELL LYMPHOMA
     Dosage: AS A PART OF R-GEM/OX REGIMEN.
     Route: 065
  8. CYCLOPHOSPHAMIDE. [Suspect]
     Active Substance: CYCLOPHOSPHAMIDE
     Indication: DIFFUSE LARGE B-CELL LYMPHOMA
     Dosage: CLASSICAL R-CHOP REGIMEN WAS ADMINISTERED IN 75 % DOSE REDUCTION DUE TO COMORBIDITIES. R-CHOP REG...
     Route: 065
  9. RITUXIMAB. [Suspect]
     Active Substance: RITUXIMAB
     Indication: DIFFUSE LARGE B-CELL LYMPHOMA
     Dosage: CLASSICAL R-CHOP REGIMEN WAS ADMINISTERED IN 75 % DOSE REDUCTION DUE TO COMORBIDITIES. R-CHOP REG...
     Route: 065
  10. RITUXIMAB. [Suspect]
     Active Substance: RITUXIMAB
     Dosage: AS A PART OF R-DHAP REGIMEN.
     Route: 065
  11. CARMUSTINE. [Suspect]
     Active Substance: CARMUSTINE
     Indication: DIFFUSE LARGE B-CELL LYMPHOMA
     Dosage: AS A PART OF DEXA-BEAM REGIMEN.
     Route: 065
  12. DEXAMETHASONE. [Suspect]
     Active Substance: DEXAMETHASONE
     Dosage: AS A PART OF DEXA-BEAM REGIMEN
     Route: 065
  13. ETOPOSIDE. [Suspect]
     Active Substance: ETOPOSIDE
     Indication: DIFFUSE LARGE B-CELL LYMPHOMA
     Dosage: 250 MG/M2 DAILY; AS A PART OF DEXA-BEAM REGIMEN; OVER 4 DAYS.
     Route: 065
  14. CYTARABINE. [Suspect]
     Active Substance: CYTARABINE
     Indication: DIFFUSE LARGE B-CELL LYMPHOMA
     Dosage: 4000 MG/M2 DAILY; AS A PART OF R-DHAP REGIMEN.
     Route: 065
  15. MELPHALAN. [Suspect]
     Active Substance: MELPHALAN
     Indication: DIFFUSE LARGE B-CELL LYMPHOMA
     Dosage: AS A PART OF DEXA-BEAM REGIMEN.
     Route: 065
  16. DOXORUBICIN [Suspect]
     Active Substance: DOXORUBICIN
     Indication: DIFFUSE LARGE B-CELL LYMPHOMA
     Dosage: CLASSICAL R-CHOP REGIMEN WAS ADMINISTERED IN 75 % DOSE REDUCTION DUE TO COMORBIDITIES. R-CHOP REG...
     Route: 065
  17. RITUXIMAB. [Suspect]
     Active Substance: RITUXIMAB
     Dosage: AS A PART OF R-GEM/OX REGIMEN.
     Route: 065

REACTIONS (1)
  - Thrombocytopenia [Unknown]
